FAERS Safety Report 7296949-5 (Version None)
Quarter: 2011Q1

REPORT INFORMATION
  Report Type: 
  Country: None (occurrence: None)
  Receive Date: 20110216
  Receipt Date: 20110208
  Transmission Date: 20110831
  Serious: Yes (Hospitalization)
  Sender: FDA-Public Use
  Company Number: ES-CEPHALON-2010000020

PATIENT
  Sex: Male

DRUGS (5)
  1. SEPTRIN [Concomitant]
  2. BENDAMUSTINE HCL [Suspect]
     Indication: LYMPHOMA
     Dates: start: 20091216
  3. RITUXIMAB [Suspect]
  4. MITOXANTRONE [Suspect]
  5. DEXAMETHASONE [Suspect]

REACTIONS (3)
  - PYREXIA [None]
  - PNEUMONIA [None]
  - INFLUENZA [None]
